FAERS Safety Report 6897779-6 (Version None)
Quarter: 2010Q3

REPORT INFORMATION
  Report Type: 
  Country: None (occurrence: None)
  Receive Date: 20100802
  Receipt Date: 20070717
  Transmission Date: 20110219
  Serious: Yes (Other)
  Sender: FDA-Public Use
  Company Number: US-PFIZER INC-2007013857

PATIENT
  Sex: Male
  Weight: 73.5 kg

DRUGS (6)
  1. LYRICA [Suspect]
     Indication: HYPOAESTHESIA
     Route: 048
     Dates: start: 20061201
  2. LYRICA [Suspect]
     Indication: INTERVERTEBRAL DISC DISORDER
  3. FIORICET [Concomitant]
  4. ASPIRIN [Concomitant]
  5. FLEXERIL [Concomitant]
  6. ALEVE (CAPLET) [Concomitant]

REACTIONS (3)
  - RASH [None]
  - SKIN DISCOLOURATION [None]
  - VISUAL IMPAIRMENT [None]
